FAERS Safety Report 6460660-0 (Version None)
Quarter: 2009Q4

REPORT INFORMATION
  Report Type: 
  Country: None (occurrence: None)
  Receive Date: 20091130
  Receipt Date: 20091109
  Transmission Date: 20100525
  Serious: Yes (Hospitalization)
  Sender: FDA-Public Use
  Company Number: JP-SANOFI-AVENTIS-F01200900915

PATIENT
  Age: 73 Year
  Sex: Male
  Weight: 54 kg

DRUGS (12)
  1. CLOPIDOGREL BISULFATE [Suspect]
     Route: 048
     Dates: start: 20070802, end: 20071007
  2. CLOPIDOGREL BISULFATE [Suspect]
     Route: 048
     Dates: start: 20070802, end: 20071007
  3. SLONNON [Concomitant]
     Route: 042
     Dates: start: 20070730, end: 20070802
  4. WARFARIN SODIUM [Concomitant]
     Route: 048
     Dates: start: 20070208, end: 20071007
  5. PROTECADIN [Concomitant]
     Route: 048
  6. RADICUT [Concomitant]
     Route: 042
     Dates: start: 20070727, end: 20070802
  7. PHENYTOIN [Concomitant]
     Route: 048
     Dates: start: 20070410
  8. PANTOSIN [Concomitant]
     Indication: CONSTIPATION
     Route: 048
     Dates: start: 20070205, end: 20070807
  9. MAGNESIUM OXIDE [Concomitant]
     Route: 048
     Dates: start: 20070205, end: 20070807
  10. SENNA ALEXANDRINA [Concomitant]
     Route: 048
     Dates: start: 20070205
  11. GASTER [Concomitant]
     Route: 048
     Dates: start: 20070209
  12. CERCINE [Concomitant]
     Route: 048
     Dates: start: 20070607

REACTIONS (2)
  - CHOLECYSTITIS ACUTE [None]
  - CHOLELITHIASIS [None]
